FAERS Safety Report 4556783-3 (Version None)
Quarter: 2005Q1

REPORT INFORMATION
  Report Type: 
  Country: None (occurrence: None)
  Receive Date: 20050120
  Receipt Date: 20041201
  Transmission Date: 20050727
  Serious: Yes (Hospitalization)
  Sender: FDA-Public Use
  Company Number: US-ROCHE-387957

PATIENT
  Age: 66 Year
  Sex: Female

DRUGS (9)
  1. CAPECITABINE [Suspect]
     Indication: METASTATIC RENAL CELL CARCINOMA
     Dosage: ON DAYS 1-21 OF A 28 DAY CYCLE.
     Route: 048
     Dates: start: 20041029, end: 20041121
  2. GEMZAR [Suspect]
     Indication: METASTATIC RENAL CELL CARCINOMA
     Dosage: ON DAYS 1, 8 AND 15 OF A 21 DAY CYCLE.
     Route: 042
     Dates: start: 20041029, end: 20041112
  3. NORVASC [Concomitant]
  4. SYNTHROID [Concomitant]
  5. EVISTA [Concomitant]
  6. ZOCOR [Concomitant]
  7. PLAVIX [Concomitant]
  8. ASPIRIN [Concomitant]
  9. ARANESP [Concomitant]

REACTIONS (6)
  - BLOOD CREATININE [None]
  - DEHYDRATION [None]
  - DIARRHOEA [None]
  - HYPONATRAEMIA [None]
  - HYPOTHYROIDISM [None]
  - VOMITING [None]
